FAERS Safety Report 16658613 (Version 4)
Quarter: 2019Q4

REPORT INFORMATION
  Report Type: Report from Study
  Country: KR (occurrence: KR)
  Receive Date: 20190801
  Receipt Date: 20191015
  Transmission Date: 20200122
  Serious: Yes (Hospitalization)
  Sender: FDA-Public Use
  Company Number: KR-PFIZER INC-2019327070

PATIENT
  Age: 62 Year
  Sex: Female

DRUGS (23)
  1. DIABEX [Concomitant]
     Active Substance: METFORMIN HYDROCHLORIDE
     Indication: PROPHYLAXIS
     Dosage: 500 MG, 3X/DAY
     Route: 048
     Dates: start: 20190319
  2. SELENASE T [Concomitant]
     Indication: FATIGUE
     Dosage: 20 ML, 1X/DAY
     Route: 042
     Dates: start: 20190520, end: 20190520
  3. BEVACIZUMAB. [Suspect]
     Active Substance: BEVACIZUMAB
     Indication: OVARIAN CANCER
     Dosage: 15 MG/KG, EVERY 3 WEEKS
     Route: 042
     Dates: start: 20190408
  4. CARBOPLATIN. [Suspect]
     Active Substance: CARBOPLATIN
     Indication: OVARIAN CANCER
     Dosage: 693.5 MG, EVERY 3 WEEKS
     Route: 042
     Dates: start: 20190318
  5. NEULAPEG [Concomitant]
     Indication: PROPHYLAXIS
     Dosage: 6 MG, 1X/DAY
     Route: 058
     Dates: start: 20190520, end: 20190521
  6. NASEA OD [Concomitant]
     Active Substance: RAMOSETRON HYDROCHLORIDE
     Indication: PROPHYLAXIS
     Dosage: 0.1 MG, 1X/DAY
     Route: 048
     Dates: start: 20190521, end: 20190522
  7. NEURONTIN [Concomitant]
     Active Substance: GABAPENTIN
     Indication: PARAESTHESIA
     Dosage: 600 MG, 2X/DAY
     Route: 048
     Dates: start: 20190508, end: 20190520
  8. FERINJECT [Concomitant]
     Active Substance: FERRIC CARBOXYMALTOSE
     Dosage: 1000 MG, 1X/DAY
     Route: 042
     Dates: start: 20190527, end: 20190527
  9. NUCYNTA ER [Concomitant]
     Active Substance: TAPENTADOL HYDROCHLORIDE
     Dosage: 50 MG, 1X/DAY
     Route: 048
     Dates: start: 20190528, end: 20190608
  10. PACLITAXEL. [Suspect]
     Active Substance: PACLITAXEL
     Indication: OVARIAN CANCER
     Dosage: 280 MG, EVERY 3 WEEKS
     Route: 042
     Dates: start: 20190318
  11. SYLCON [Concomitant]
     Active Substance: CALCIUM POLYCARBOPHIL
     Indication: CONSTIPATION
     Dosage: 1250 MG, 3X/DAY
     Route: 048
     Dates: start: 20190508, end: 20190516
  12. SYNTHROID [Concomitant]
     Active Substance: LEVOTHYROXINE SODIUM
     Indication: THYROID CANCER
     Dosage: 0.125 MG, 1X/DAY
     Route: 048
     Dates: start: 20180627
  13. MUPIROCIN. [Concomitant]
     Active Substance: MUPIROCIN
     Indication: ANTIBIOTIC PROPHYLAXIS
     Dosage: 10 G, AS NEEDED (DERMA: ILLINITION)
     Route: 061
     Dates: start: 20190319
  14. DEXAMETHASONE. [Concomitant]
     Active Substance: DEXAMETHASONE
     Indication: PROPHYLAXIS
     Dosage: 2 MG, 3X/DAY
     Route: 048
     Dates: start: 20190521, end: 20190522
  15. MEGACE [Concomitant]
     Active Substance: MEGESTROL ACETATE
     Indication: PROPHYLAXIS
     Dosage: 20 ML, 1X/DAY
     Route: 048
     Dates: start: 20190508, end: 20190608
  16. FERINJECT [Concomitant]
     Active Substance: FERRIC CARBOXYMALTOSE
     Indication: ANAEMIA
     Dosage: 1000 MG, 1X/DAY
     Route: 042
     Dates: start: 20190519, end: 20190519
  17. NUCYNTA ER [Concomitant]
     Active Substance: TAPENTADOL HYDROCHLORIDE
     Indication: PARAESTHESIA
     Dosage: 50 MG, 2X/DAY
     Route: 048
     Dates: start: 20190521, end: 20190527
  18. NESP [Concomitant]
     Active Substance: DARBEPOETIN ALFA
     Dosage: 0.38 MG, 1X/DAY
     Route: 042
     Dates: start: 20190527, end: 20190527
  19. NEURONTIN [Concomitant]
     Active Substance: GABAPENTIN
     Dosage: 600 MG, 3X/DAY
     Route: 048
     Dates: start: 20190521, end: 20190610
  20. MYPOL [CODEINE PHOSPHATE;IBUPROFEN;PARACETAMOL] [Concomitant]
     Indication: PARAESTHESIA
     Dosage: 1 DF, 2X/DAY
     Route: 048
     Dates: start: 20190507, end: 20190520
  21. CRAVIT [Concomitant]
     Active Substance: LEVOFLOXACIN
     Indication: C-REACTIVE PROTEIN INCREASED
     Dosage: 500 MG, 1X/DAY
     Route: 048
     Dates: start: 20190511, end: 20190516
  22. NESP [Concomitant]
     Active Substance: DARBEPOETIN ALFA
     Indication: ANAEMIA
     Dosage: 0.38 MG, 1X/DAY
     Route: 042
     Dates: start: 20190519, end: 20190519
  23. CURAN [Concomitant]
     Active Substance: RANITIDINE HYDROCHLORIDE
     Indication: PROPHYLAXIS
     Dosage: 150 MG, 1X/DAY
     Route: 048
     Dates: start: 20190520, end: 20190521

REACTIONS (1)
  - Muscular weakness [Recovered/Resolved]

NARRATIVE: CASE EVENT DATE: 20190527
